FAERS Safety Report 7728648-7 (Version None)
Quarter: 2011Q3

REPORT INFORMATION
  Report Type: 
  Country: None (occurrence: None)
  Receive Date: 20110831
  Receipt Date: 20110831
  Transmission Date: 20111222
  Serious: Yes (Life-Threatening, Hospitalization)
  Sender: FDA-Public Use
  Company Number: None

PATIENT
  Age: 44 Year
  Sex: Female

DRUGS (2)
  1. BUPRENORPHINE HCL AND NALOXONE HCL [Suspect]
     Indication: DRUG DEPENDENCE
     Dates: start: 20110524, end: 20110818
  2. CLONAZEPAM [Suspect]
     Indication: ANXIETY
     Dates: start: 20110817, end: 20110818

REACTIONS (2)
  - OVERDOSE [None]
  - RESPIRATORY DEPRESSION [None]
